FAERS Safety Report 16028670 (Version 2)
Quarter: 2019Q1

REPORT INFORMATION
  Report Type: Spontaneous
  Country: AE (occurrence: AE)
  Receive Date: 20190304
  Receipt Date: 20190321
  Transmission Date: 20190418
  Serious: Yes (Death, Hospitalization, Other)
  Sender: FDA-Public Use
  Company Number: AE-UNITED THERAPEUTICS-UNT-2019-003756

PATIENT
  Age: 66 Year
  Sex: Female
  Weight: 45 kg

DRUGS (3)
  1. RIOCIGUAT. [Concomitant]
     Active Substance: RIOCIGUAT
     Indication: PULMONARY ARTERIAL HYPERTENSION
     Dosage: UNK
     Route: 048
     Dates: end: 20190225
  2. MACITENTAN [Concomitant]
     Active Substance: MACITENTAN
     Indication: PULMONARY ARTERIAL HYPERTENSION
     Dosage: UNK
     Route: 048
     Dates: end: 20190225
  3. REMODULIN [Suspect]
     Active Substance: TREPROSTINIL
     Indication: PULMONARY ARTERIAL HYPERTENSION
     Dosage: 0.1 ?G/KG, CONTINUING
     Route: 041
     Dates: start: 201501, end: 20190225

REACTIONS (5)
  - Disease progression [Fatal]
  - Right ventricular failure [Fatal]
  - Hypoxia [Fatal]
  - Pulmonary hypertension [Fatal]
  - Respiratory failure [Fatal]
